FAERS Safety Report 16791713 (Version 4)
Quarter: 2019Q4

REPORT INFORMATION
  Report Type: Report from Study
  Country: BR (occurrence: BR)
  Receive Date: 20190910
  Receipt Date: 20191106
  Transmission Date: 20200122
  Serious: Yes (Hospitalization)
  Sender: FDA-Public Use
  Company Number: PHHY2019BR204305

PATIENT
  Age: 16 Year
  Sex: Female

DRUGS (2)
  1. OMNITROPE [Suspect]
     Active Substance: SOMATROPIN
     Indication: GROWTH HORMONE DEFICIENCY
     Dosage: 0.6 MG, 5 TIMES A WEEK (MON TO FRI)
     Route: 058
     Dates: start: 20190701
  2. OMNITROPE [Suspect]
     Active Substance: SOMATROPIN
     Dosage: 1.0 MG, 5 TIMES A WEEK
     Route: 058

REACTIONS (14)
  - Injection site haemorrhage [Unknown]
  - Device leakage [Unknown]
  - Alopecia [Not Recovered/Not Resolved]
  - Drug intolerance [Unknown]
  - Mental disorder [Unknown]
  - Wrong technique in device usage process [Unknown]
  - Injection site discomfort [Unknown]
  - Device issue [Unknown]
  - Injection site injury [Unknown]
  - Fear of injection [Unknown]
  - Product administration error [Unknown]
  - Injection site pain [Unknown]
  - Injection site discolouration [Unknown]
  - Incorrect dose administered by device [Recovered/Resolved]

NARRATIVE: CASE EVENT DATE: 201907
